FAERS Safety Report 7992717-7 (Version None)
Quarter: 2011Q4

REPORT INFORMATION
  Report Type: 
  Country: None (occurrence: None)
  Receive Date: 20111219
  Receipt Date: 20110328
  Transmission Date: 20120403
  Serious: No
  Sender: FDA-Public Use
  Company Number: US-ASTRAZENECA-2010SE27309

PATIENT
  Age: 56 Year
  Sex: Male

DRUGS (9)
  1. MYCOPHENOLATE MOFETIL [Concomitant]
  2. POLY IRON [Concomitant]
  3. CALCITRIOL [Concomitant]
  4. BUMETANIDE [Concomitant]
  5. CRESTOR [Suspect]
     Route: 048
  6. WELCHOL [Concomitant]
  7. RAPAMUNE [Concomitant]
  8. PREDNISONE TAB [Concomitant]
  9. CARBIDOPA [Concomitant]

REACTIONS (6)
  - WRONG TECHNIQUE IN DRUG USAGE PROCESS [None]
  - BLOOD URINE PRESENT [None]
  - DYSPHAGIA [None]
  - MYALGIA [None]
  - ADVERSE DRUG REACTION [None]
  - DRUG INEFFECTIVE [None]
